FAERS Safety Report 16952123 (Version 1)
Quarter: 2019Q4

REPORT INFORMATION
  Report Type: Spontaneous
  Country: US (occurrence: US)
  Receive Date: 20191022
  Receipt Date: 20191022
  Transmission Date: 20200122
  Serious: No
  Sender: FDA-Public Use
  Company Number: None

PATIENT
  Age: 9 Year
  Sex: Female
  Weight: 9 kg

DRUGS (1)
  1. LEVETIRACETAM 100 MG/ML [Suspect]
     Active Substance: LEVETIRACETAM
     Indication: SEIZURE PROPHYLAXIS
     Dosage: ?          QUANTITY:90 1.5;?
     Route: 048
     Dates: start: 20191019, end: 20191020

REACTIONS (3)
  - Product formulation issue [None]
  - Diarrhoea [None]
  - Vomiting [None]

NARRATIVE: CASE EVENT DATE: 20191019
